FAERS Safety Report 8960840 (Version 2)
Quarter: 2013Q1

REPORT INFORMATION
  Report Type: Spontaneous
  Country: US (occurrence: None)
  Receive Date: 20121128
  Receipt Date: 20130128
  Transmission Date: 20140127
  Serious: Yes (Hospitalization)
  Sender: FDA-Public Use
  Company Number: 2012US-004469

PATIENT
  Age: 75 Year
  Sex: Male

DRUGS (11)
  1. OMONTYS [Suspect]
     Indication: NEPHROGENIC ANAEMIA
     Route: 042
     Dates: start: 20121024, end: 20121024
  2. BELLADONNA ALKALOIDS [Concomitant]
  3. PHENOBARBITAL [Concomitant]
  4. IMDUR [Concomitant]
  5. MEGACE [Concomitant]
  6. LANTUS [Concomitant]
  7. COLACE [Concomitant]
  8. PRILOSEC [Concomitant]
  9. REGLAN [Concomitant]
  10. SENSIPAR [Concomitant]
  11. SYNTHROID [Concomitant]

REACTIONS (4)
  - Haemoptysis [None]
  - Haemoglobin decreased [None]
  - Haematochezia [None]
  - Haemoglobin decreased [None]
